FAERS Safety Report 16950762 (Version 1)
Quarter: 2019Q4

REPORT INFORMATION
  Report Type: Spontaneous
  Country: US (occurrence: US)
  Receive Date: 20191023
  Receipt Date: 20191023
  Transmission Date: 20200122
  Serious: Yes (Other)
  Sender: FDA-Public Use
  Company Number: US-MELINTA THERAPEUTICS, INC-US-MLNT-19-00176

PATIENT
  Age: 66 Year
  Sex: Female

DRUGS (9)
  1. CLINDAMYCIN. [Concomitant]
     Active Substance: CLINDAMYCIN
     Indication: STAPHYLOCOCCAL INFECTION
  2. CLINDAMYCIN. [Concomitant]
     Active Substance: CLINDAMYCIN
     Indication: STAPHYLOCOCCAL INFECTION
     Dosage: NOT PROVIDED.
     Route: 048
  3. CLINDAMYCIN. [Concomitant]
     Active Substance: CLINDAMYCIN
     Indication: SOFT TISSUE INFECTION
  4. ORBACTIV [Suspect]
     Active Substance: ORITAVANCIN
     Dosage: NOT PROVIDED.
     Route: 041
  5. ORBACTIV [Suspect]
     Active Substance: ORITAVANCIN
     Indication: STAPHYLOCOCCAL INFECTION
     Dosage: NOT PROVIDED.
     Route: 041
  6. VANCOMYCIN [Suspect]
     Active Substance: VANCOMYCIN
     Indication: STAPHYLOCOCCAL INFECTION
  7. ORBACTIV [Suspect]
     Active Substance: ORITAVANCIN
     Indication: SOFT TISSUE INFECTION
     Dosage: NOT PROVIDED.
     Route: 041
  8. VANCOMYCIN [Suspect]
     Active Substance: VANCOMYCIN
     Indication: JOINT ABSCESS
     Dosage: NOT PROVIDED.
     Route: 041
  9. CLINDAMYCIN. [Concomitant]
     Active Substance: CLINDAMYCIN
     Indication: JOINT ABSCESS
     Dosage: NOT PROVIDED.
     Route: 048

REACTIONS (3)
  - Off label use [Recovering/Resolving]
  - Drug effective for unapproved indication [Recovering/Resolving]
  - Deafness neurosensory [Recovering/Resolving]
